FAERS Safety Report 25431014 (Version 3)
Quarter: 2025Q3

REPORT INFORMATION
  Report Type: Report from Study
  Country: US (occurrence: US)
  Receive Date: 20250612
  Receipt Date: 20250926
  Transmission Date: 20251021
  Serious: Yes (Other)
  Sender: MALLINCKRODT
  Company Number: US-MALLINCKRODT-MNK202501743

PATIENT
  Age: 66 Year
  Sex: Female

DRUGS (4)
  1. CORTICOTROPIN [Suspect]
     Active Substance: CORTICOTROPIN
     Indication: Sympathetic ophthalmia
     Dosage: 40 UNITS
     Route: 058
     Dates: start: 20201106, end: 20250511
  2. CORTICOTROPIN [Suspect]
     Active Substance: CORTICOTROPIN
     Indication: Rheumatoid arthritis
  3. REMICADE [Concomitant]
     Active Substance: INFLIXIMAB
     Indication: Arthritis
     Dosage: UNKNOWN
  4. REMICADE [Concomitant]
     Active Substance: INFLIXIMAB

REACTIONS (12)
  - Lung neoplasm malignant [Unknown]
  - Eye pain [Unknown]
  - Asthenopia [Not Recovered/Not Resolved]
  - Memory impairment [Not Recovered/Not Resolved]
  - Frustration tolerance decreased [Not Recovered/Not Resolved]
  - Aphasia [Unknown]
  - Arthralgia [Unknown]
  - Bone pain [Unknown]
  - Eye disorder [Unknown]
  - Injection site bruising [Unknown]
  - Drug ineffective [Unknown]
  - Expired product administered [Unknown]

NARRATIVE: CASE EVENT DATE: 20250501
